FAERS Safety Report 21937451 (Version 1)
Quarter: 2023Q1

REPORT INFORMATION
  Report Type: Spontaneous
  Country: FR (occurrence: FR)
  Receive Date: 20230201
  Receipt Date: 20230201
  Transmission Date: 20230418
  Serious: Yes (Hospitalization)
  Sender: FDA-Public Use
  Company Number: None

PATIENT
  Age: 17 Year
  Sex: Male

DRUGS (6)
  1. XANAX [Suspect]
     Active Substance: ALPRAZOLAM
     Indication: Product used for unknown indication
     Dosage: UNK
     Route: 048
  2. CANNABIS SATIVA SUBSP. INDICA TOP [Suspect]
     Active Substance: CANNABIS SATIVA SUBSP. INDICA TOP
     Indication: Product used for unknown indication
     Dosage: UNK, FOR THE MOMENT 10 JOINTS/DAY
     Dates: start: 2017
  3. ALCOHOL [Suspect]
     Active Substance: ALCOHOL
     Indication: Product used for unknown indication
     Dosage: UNK, 1 BEER 8.6 (3 IU/DAY) PER DAY + STRONG ALC
     Route: 048
     Dates: start: 202107
  4. ALCOHOL [Suspect]
     Active Substance: ALCOHOL
     Dosage: UNK, OCCASIONAL
     Route: 048
     Dates: start: 2017, end: 202107
  5. COCAINE [Suspect]
     Active Substance: COCAINE
     Indication: Product used for unknown indication
     Dosage: OCCASIONAL (2-3 TIMES OVER 2 MONTHS)
     Route: 045
     Dates: start: 202107
  6. COCAINE [Suspect]
     Active Substance: COCAINE
     Dosage: UNK
     Route: 060
     Dates: start: 202107

REACTIONS (8)
  - Cold sweat [Recovered/Resolved]
  - Palpitations [Recovered/Resolved]
  - Depression [Recovering/Resolving]
  - Withdrawal syndrome [Recovered/Resolved]
  - Tremor [Recovered/Resolved]
  - Anxiety [Recovering/Resolving]
  - Suicidal ideation [Recovering/Resolving]
  - Drug abuse [Recovering/Resolving]

NARRATIVE: CASE EVENT DATE: 20170101
